FAERS Safety Report 9313027 (Version 1)
Quarter: 2013Q2

REPORT INFORMATION
  Report Type: Spontaneous
  Country: US (occurrence: US)
  Receive Date: 20130528
  Receipt Date: 20130528
  Transmission Date: 20140414
  Serious: No
  Sender: FDA-Public Use
  Company Number: US-ABBOTT-13P-163-1057187-00

PATIENT
  Age: 62 Year
  Sex: Male
  Weight: 108.96 kg

DRUGS (8)
  1. ANDROGEL 1.62% [Suspect]
     Indication: BLOOD TESTOSTERONE DECREASED
     Dosage: 2 PUMPS
     Route: 061
     Dates: start: 201301
  2. METFORMIN [Concomitant]
     Indication: DIABETES MELLITUS
  3. LIPITOR [Concomitant]
     Indication: BLOOD CHOLESTEROL INCREASED
  4. GLIPIZIDE [Concomitant]
     Indication: DIABETES MELLITUS
  5. LANTUS [Concomitant]
     Indication: DIABETES MELLITUS
  6. ACTOS [Concomitant]
     Indication: DIABETES MELLITUS
  7. RAMIPRIL [Concomitant]
     Indication: HYPERTENSION
  8. SYNTHROID [Concomitant]
     Indication: HYPOTHYROIDISM

REACTIONS (2)
  - Semen volume decreased [Not Recovered/Not Resolved]
  - Sperm concentration decreased [Not Recovered/Not Resolved]
